FAERS Safety Report 18445762 (Version 1)
Quarter: 2020Q4

REPORT INFORMATION
  Report Type: Spontaneous
  Country: IT (occurrence: IT)
  Receive Date: 20201030
  Receipt Date: 20201030
  Transmission Date: 20210114
  Serious: Yes (Hospitalization)
  Sender: FDA-Public Use
  Company Number: IT-TEVA-2020-IT-1843740

PATIENT
  Age: 61 Year
  Sex: Male

DRUGS (2)
  1. CISPLATIN. [Suspect]
     Active Substance: CISPLATIN
     Indication: PLEURAL MESOTHELIOMA MALIGNANT
     Dosage: RECEIVED 3 CYCLES
     Route: 065
     Dates: end: 201909
  2. PEMETREXED. [Suspect]
     Active Substance: PEMETREXED
     Indication: PLEURAL MESOTHELIOMA MALIGNANT
     Dosage: RECEIVED 3 CYCLES
     Route: 065
     Dates: end: 201909

REACTIONS (4)
  - Gastrooesophageal reflux disease [Recovering/Resolving]
  - Diaphragmatic rupture [Recovered/Resolved]
  - Dysphagia [Recovered/Resolved]
  - Hiatus hernia [Recovered/Resolved]
